FAERS Safety Report 22083182 (Version 1)
Quarter: 2023Q1

REPORT INFORMATION
  Report Type: Spontaneous
  Country: JP (occurrence: None)
  Receive Date: 20230310
  Receipt Date: 20230310
  Transmission Date: 20230417
  Serious: Yes (Other)
  Sender: FDA-Public Use
  Company Number: JP-Merck Healthcare KGaA-9388794

PATIENT
  Age: 65 Year
  Sex: Male

DRUGS (2)
  1. METFORMIN HYDROCHLORIDE [Suspect]
     Active Substance: METFORMIN HYDROCHLORIDE
     Indication: Type 2 diabetes mellitus
  2. LINAGLIPTIN [Concomitant]
     Active Substance: LINAGLIPTIN
     Indication: Product used for unknown indication

REACTIONS (4)
  - Neuropathy peripheral [Recovered/Resolved]
  - Vitamin B12 deficiency [Recovered/Resolved]
  - Dysstasia [Unknown]
  - Glycosylated haemoglobin increased [Unknown]
